FAERS Safety Report 24185135 (Version 1)
Quarter: 2024Q3

REPORT INFORMATION
  Report Type: Report from Study
  Country: US (occurrence: US)
  Receive Date: 20240807
  Receipt Date: 20240807
  Transmission Date: 20241017
  Serious: Yes (Other)
  Sender: ABBVIE
  Company Number: US-ABBVIE-5867629

PATIENT
  Sex: Female

DRUGS (2)
  1. VENCLEXTA [Suspect]
     Active Substance: VENETOCLAX
     Indication: Mantle cell lymphoma
     Dosage: TAKE 2 TABLETS BY MOUTH DAILY FOR 7 DAYS
     Route: 048
  2. VENCLEXTA [Suspect]
     Active Substance: VENETOCLAX
     Indication: Mantle cell lymphoma
     Dosage: TAKE 4 TABLETS OF 100 MG BY MOUTH DAILY FOR 21 DAYS WITH WATER AND FOOD AT SAME TIME EACH DAY    ...
     Route: 048
     Dates: start: 2024

REACTIONS (1)
  - Surgery [Unknown]
